FAERS Safety Report 12840126 (Version 7)
Quarter: 2017Q4

REPORT INFORMATION
  Report Type: Report from Study
  Country: CZ (occurrence: CZ)
  Receive Date: 20161012
  Receipt Date: 20171019
  Transmission Date: 20180320
  Serious: Yes (Hospitalization, Disabling, Other)
  Sender: FDA-Public Use
  Company Number: CZ-UCBSA-2016036334

PATIENT
  Age: 51 Year
  Sex: Male
  Weight: 84 kg

DRUGS (20)
  1. ETANERCEPT [Suspect]
     Active Substance: ETANERCEPT
     Dosage: 50 MG, 2X/WEEK
     Route: 058
     Dates: start: 20151007, end: 20160124
  2. CANDESARTAN CILEXETIL. [Concomitant]
     Active Substance: CANDESARTAN CILEXETIL
     Indication: HYPERTENSION
     Dosage: 8 MG, ONCE DAILY (QD)
     Route: 048
     Dates: start: 20151111
  3. DILURAN [Concomitant]
     Indication: ANAPLASTIC OLIGODENDROGLIOMA
     Dosage: 1 DF, UNK
     Route: 048
     Dates: start: 20160914
  4. DEXAMED (DEXAMETHASONE SODIUM PHOSPHATE) [Concomitant]
     Active Substance: DEXAMETHASONE SODIUM PHOSPHATE
     Indication: HAEMANGIOPERICYTOMA
     Dosage: UNK
     Dates: start: 20160911, end: 20160913
  5. LEXAURIN [Concomitant]
     Active Substance: BROMAZEPAM
     Indication: PRODUCT USED FOR UNKNOWN INDICATION
     Dosage: 1.5 MG, ONCE DAILY (QD)
     Dates: start: 20160913
  6. FRAXIPARIN [Concomitant]
     Active Substance: NADROPARIN CALCIUM
     Indication: PRODUCT USED FOR UNKNOWN INDICATION
     Dosage: 0.2 ML, ONCE DAILY (QD)
     Route: 058
     Dates: start: 20160911, end: 20160913
  7. NOVALGIN [Concomitant]
     Active Substance: METAMIZOLE SODIUM
     Indication: PRODUCT USED FOR UNKNOWN INDICATION
     Dosage: 2 DF, ONCE DAILY (QD)
     Route: 042
     Dates: start: 20160914
  8. NOREPINEPHRINE. [Concomitant]
     Active Substance: NOREPINEPHRINE
     Indication: PRODUCT USED FOR UNKNOWN INDICATION
     Dosage: 5 MG CONTINOUSLY
     Route: 042
     Dates: start: 20160914
  9. RINGERFUNDIN [Concomitant]
     Indication: PRODUCT USED FOR UNKNOWN INDICATION
  10. CONTROLOC [Concomitant]
     Active Substance: PANTOPRAZOLE SODIUM
     Indication: ANAPLASTIC OLIGODENDROGLIOMA
     Dosage: 40 MG, UNK
     Route: 042
     Dates: start: 20160914, end: 20160914
  11. PARACETAMOL [Concomitant]
     Active Substance: ACETAMINOPHEN
     Indication: ANAPLASTIC OLIGODENDROGLIOMA
     Dosage: 1 G EVERY 6 HRS
     Route: 042
     Dates: start: 20160914, end: 20160914
  12. KORYLAN [Concomitant]
     Indication: PRODUCT USED FOR UNKNOWN INDICATION
     Dosage: 1 DF, 3X/DAY (TID)
     Dates: start: 20160911, end: 20160913
  13. ANALGIN (METAMIZOLE SODIUM MONOHYDRATE) [Concomitant]
     Active Substance: DIPYRONE
     Indication: HAEMANGIOPERICYTOMA
     Dosage: 2.5 ML, 4X/DAY (QID)
     Dates: start: 20160914
  14. CERTOLIZUMAB PEGOL [Suspect]
     Active Substance: CERTOLIZUMAB PEGOL
     Indication: PSORIASIS
     Dosage: 200 MG, UNK
     Route: 058
     Dates: start: 20160906, end: 20160920
  15. CERTOLIZUMAB PEGOL [Suspect]
     Active Substance: CERTOLIZUMAB PEGOL
     Dosage: 400 MG, EV 2 WEEKS(QOW)
     Route: 058
     Dates: start: 20160125, end: 20160905
  16. CLEXANE [Concomitant]
     Active Substance: ENOXAPARIN SODIUM
     Indication: HAEMANGIOPERICYTOMA
     Dosage: 0.4 ML, ONCE DAILY (QD)
     Route: 058
     Dates: start: 20160911, end: 20160915
  17. CLEXANE [Concomitant]
     Active Substance: ENOXAPARIN SODIUM
     Indication: ANAPLASTIC OLIGODENDROGLIOMA
     Dosage: 0.2 UNK, UNK
     Route: 058
     Dates: start: 20160916, end: 20160926
  18. HELICID [Concomitant]
     Active Substance: OMEPRAZOLE
     Indication: PRODUCT USED FOR UNKNOWN INDICATION
     Dosage: 20 MG, ONCE DAILY (QD)
  19. DEGAN [Concomitant]
     Active Substance: METOCLOPRAMIDE HYDROCHLORIDE
     Indication: PRODUCT USED FOR UNKNOWN INDICATION
     Dosage: 2 DF, ONCE DAILY (QD)
     Route: 042
  20. MAGNESIUM SULPHATE [Concomitant]
     Active Substance: MAGNESIUM SULFATE
     Indication: PRODUCT USED FOR UNKNOWN INDICATION
     Dosage: 1 DF, ONCE DAILY (QD)
     Route: 042
     Dates: start: 20160914

REACTIONS (2)
  - Brain neoplasm [Not Recovered/Not Resolved]
  - Anaplastic oligodendroglioma [Recovered/Resolved with Sequelae]

NARRATIVE: CASE EVENT DATE: 20160906
